FAERS Safety Report 8857047 (Version 2)
Quarter: 2013Q3

REPORT INFORMATION
  Report Type: Spontaneous
  Country: US (occurrence: US)
  Receive Date: 20121023
  Receipt Date: 20130930
  Transmission Date: 20140515
  Serious: No
  Sender: FDA-Public Use
  Company Number: US-AMGEN-USASP2012045897

PATIENT
  Age: 8 Month
  Sex: Female

DRUGS (1)
  1. ENBREL [Suspect]
     Dosage: 50 MG, QWK
     Dates: start: 201204

REACTIONS (1)
  - Skin reaction [Unknown]
